FAERS Safety Report 17000716 (Version 1)
Quarter: 2019Q4

REPORT INFORMATION
  Report Type: Spontaneous
  Country: CA (occurrence: CA)
  Receive Date: 20191106
  Receipt Date: 20191106
  Transmission Date: 20200122
  Serious: Yes (Other)
  Sender: FDA-Public Use
  Company Number: CA-PFIZER INC-2018372662

PATIENT
  Age: 59 Year
  Sex: Male

DRUGS (2)
  1. XELJANZ [Suspect]
     Active Substance: TOFACITINIB CITRATE
     Indication: RHEUMATOID ARTHRITIS
     Dosage: 5 MG, TWICE A DAY
     Route: 048
     Dates: start: 20180814, end: 201908
  2. NAPROXEN. [Concomitant]
     Active Substance: NAPROXEN
     Dosage: UNK

REACTIONS (13)
  - Poor quality sleep [Not Recovered/Not Resolved]
  - Impaired work ability [Not Recovered/Not Resolved]
  - Depressed mood [Unknown]
  - Malaise [Unknown]
  - Condition aggravated [Unknown]
  - Depression [Unknown]
  - Inflammation [Unknown]
  - Emotional distress [Unknown]
  - Gait disturbance [Unknown]
  - Osteoarthritis [Unknown]
  - Energy increased [Unknown]
  - Suicide attempt [Unknown]
  - Discomfort [Not Recovered/Not Resolved]
